FAERS Safety Report 7299071-7 (Version None)
Quarter: 2011Q1

REPORT INFORMATION
  Report Type: 
  Country: None (occurrence: None)
  Receive Date: 20110217
  Receipt Date: 20110217
  Transmission Date: 20110831
  Serious: Yes (Other)
  Sender: FDA-Public Use
  Company Number: None

PATIENT
  Sex: Female
  Weight: 72 kg

DRUGS (1)
  1. ALCOHOL SWABS NA TRIAD [Suspect]
     Dates: start: 20110130, end: 20110211

REACTIONS (2)
  - INCISION SITE INFECTION [None]
  - PRODUCT QUALITY ISSUE [None]
